FAERS Safety Report 5200474-2 (Version None)
Quarter: 2007Q1

REPORT INFORMATION
  Report Type: 
  Country: None (occurrence: None)
  Receive Date: 20070105
  Receipt Date: 20070102
  Transmission Date: 20070707
  Serious: Yes (Other)
  Sender: FDA-Public Use
  Company Number: ES-MERCK-0701ESP00002

PATIENT
  Age: 51 Year
  Sex: Male

DRUGS (2)
  1. ZETIA [Suspect]
     Indication: HYPERCHOLESTEROLAEMIA
     Route: 048
     Dates: start: 20041201
  2. PRAVASTATIN SODIUM [Suspect]
     Route: 048
     Dates: start: 20000101

REACTIONS (2)
  - DRUG INTERACTION [None]
  - TENDON DISORDER [None]
